FAERS Safety Report 7453884 (Version 6)
Quarter: 2013Q4

REPORT INFORMATION
  Report Type: Spontaneous
  Country: US (occurrence: US)
  Receive Date: 20100706
  Receipt Date: 20131105
  Transmission Date: 20140711
  Serious: Yes (Other)
  Sender: FDA-Public Use
  Company Number: US-BAYER-201026825NA

PATIENT
  Age: 40 Year
  Sex: Female
  Weight: 124.72 kg

DRUGS (6)
  1. YASMIN [Suspect]
     Indication: ORAL CONTRACEPTION
     Dosage: UNK
     Route: 048
     Dates: start: 200409, end: 2009
  2. YASMIN [Suspect]
     Indication: OVARIAN CYST
  3. YASMIN [Suspect]
     Indication: POLYCYSTIC OVARIES
  4. LISINOPRIL [Concomitant]
     Indication: HYPERTENSION
     Dosage: 5 MG, QD
     Route: 048
     Dates: start: 2006
  5. HYDROCHLOROTHIAZIDE [Concomitant]
     Indication: HYPERTENSION
     Dosage: 12.5 MG, QD
     Route: 048
     Dates: start: 2006
  6. NYSTATIN [Concomitant]
     Indication: FUNGAL INFECTION
     Dosage: UNK UNK, BID
     Route: 061
     Dates: start: 200803

REACTIONS (3)
  - Gallbladder disorder [None]
  - Hepatic cirrhosis [None]
  - Cholecystitis chronic [None]
